FAERS Safety Report 12215213 (Version 2)
Quarter: 2016Q2

REPORT INFORMATION
  Report Type: Spontaneous
  Country: IT (occurrence: IT)
  Receive Date: 20160328
  Receipt Date: 20160503
  Transmission Date: 20160815
  Serious: No
  Sender: FDA-Public Use
  Company Number: IT-MATRIXX INITIATIVES, INC.-1049831

PATIENT
  Age: 29 Year
  Sex: Female
  Weight: 50 kg

DRUGS (1)
  1. ZICAM EXTREME CONGESTION RELIEF [Suspect]
     Active Substance: OXYMETAZOLINE HYDROCHLORIDE
     Route: 045
     Dates: start: 20160327, end: 20160327

REACTIONS (3)
  - Anosmia [Recovered/Resolved]
  - Nasal discomfort [Recovered/Resolved]
  - Ageusia [Recovered/Resolved]
